FAERS Safety Report 7248374-0 (Version None)
Quarter: 2011Q1

REPORT INFORMATION
  Report Type: 
  Country: None (occurrence: None)
  Receive Date: 20110127
  Receipt Date: 20110118
  Transmission Date: 20110831
  Serious: Yes (Hospitalization, Other)
  Sender: FDA-Public Use
  Company Number: US-ASTRAZENECA-2010SE60087

PATIENT
  Age: 48 Year
  Sex: Female

DRUGS (2)
  1. METHADONE [Concomitant]
  2. NEXIUM [Suspect]
     Route: 048

REACTIONS (4)
  - SPINAL OPERATION [None]
  - CONDITION AGGRAVATED [None]
  - GASTROINTESTINAL DISORDER [None]
  - METASTASES TO LIVER [None]
